FAERS Safety Report 11081090 (Version 1)
Quarter: 2015Q2

REPORT INFORMATION
  Report Type: Spontaneous
  Country: US (occurrence: None)
  Receive Date: 20150430
  Receipt Date: 20150430
  Transmission Date: 20150821
  Serious: Yes (Hospitalization)
  Sender: FDA-Public Use
  Company Number: None

PATIENT
  Age: 67 Year
  Sex: Male
  Weight: 91.63 kg

DRUGS (9)
  1. METOPROLOL [Concomitant]
     Active Substance: METOPROLOL
  2. HUMIRA [Concomitant]
     Active Substance: ADALIMUMAB
  3. DOCUSATE SODIUM. [Concomitant]
     Active Substance: DOCUSATE SODIUM
  4. LISINOPRIL. [Concomitant]
     Active Substance: LISINOPRIL
  5. FLONASE [Concomitant]
     Active Substance: FLUTICASONE PROPIONATE
  6. XARELTO [Suspect]
     Active Substance: RIVAROXABAN
     Indication: ATRIAL FIBRILLATION
     Dates: start: 20150107, end: 20150412
  7. TAMSULOSIN [Concomitant]
     Active Substance: TAMSULOSIN
  8. CLOBETASOL [Concomitant]
     Active Substance: CLOBETASOL
  9. PRESERVISION AREOS [Concomitant]

REACTIONS (2)
  - Renal haematoma [None]
  - Anaemia [None]

NARRATIVE: CASE EVENT DATE: 20150412
